FAERS Safety Report 26028191 (Version 1)
Quarter: 2025Q4

REPORT INFORMATION
  Report Type: Spontaneous
  Country: US (occurrence: US)
  Receive Date: 20251111
  Receipt Date: 20251111
  Transmission Date: 20260117
  Serious: No
  Sender: ORASIS PHARMACEUTICALS
  Company Number: US-ORASIS PHARMACEUTIALS-2025ORA00092

PATIENT
  Sex: Female

DRUGS (2)
  1. QLOSI [Suspect]
     Active Substance: PILOCARPINE HYDROCHLORIDE
     Dosage: 1 DROP, INTO LEFT EYE, 1-2 TIMES DAILY AS DIRECTED
     Route: 047
  2. QLOSI [Suspect]
     Active Substance: PILOCARPINE HYDROCHLORIDE
     Dosage: 1 DROP, INTO RIGHT EYE, 1-2 TIMES DAILY AS DIRECTED
     Route: 047

REACTIONS (5)
  - Ocular hyperaemia [Unknown]
  - Eye irritation [Unknown]
  - Liquid product physical issue [Not Recovered/Not Resolved]
  - Product storage error [Recovered/Resolved]
  - Product dose omission issue [Recovered/Resolved]
